FAERS Safety Report 10008590 (Version 1)
Quarter: 2014Q1

REPORT INFORMATION
  Report Type: Spontaneous
  Country: US (occurrence: None)
  Receive Date: 20140228
  Receipt Date: 20140228
  Transmission Date: 20141002
  Serious: Yes (Other)
  Sender: FDA-Public Use
  Company Number: 225744

PATIENT
  Age: 42 Year
  Sex: Female

DRUGS (1)
  1. PICATO GEL [Suspect]
     Indication: BASAL CELL CARCINOMA

REACTIONS (6)
  - Inflammation [None]
  - Hypersensitivity [None]
  - Application site rash [None]
  - Acne [None]
  - Application site scar [None]
  - Off label use [None]
